FAERS Safety Report 7101124-0 (Version None)
Quarter: 2010Q4

REPORT INFORMATION
  Report Type: 
  Country: None (occurrence: None)
  Receive Date: 20101113
  Receipt Date: 20100512
  Transmission Date: 20110411
  Serious: No
  Sender: FDA-Public Use
  Company Number: US-ALLERGAN-1006588US

PATIENT
  Age: 32 Year
  Sex: Female
  Weight: 56.689 kg

DRUGS (6)
  1. BOTOX COSMETIC [Suspect]
     Indication: SKIN WRINKLING
     Dosage: 26 UNITS, SINGLE
     Route: 030
     Dates: start: 20100330, end: 20100330
  2. BOTOX COSMETIC [Suspect]
     Dosage: UNK
     Route: 030
     Dates: start: 20080808, end: 20080808
  3. BOTOX COSMETIC [Suspect]
     Dosage: UNK
     Route: 030
     Dates: start: 20090316, end: 20090316
  4. BOTOX COSMETIC [Suspect]
     Dosage: UNK
     Route: 030
     Dates: start: 20091105, end: 20091105
  5. BOTOX COSMETIC [Suspect]
     Dosage: UNK
     Route: 030
     Dates: start: 20100401, end: 20100401
  6. EMLA [Concomitant]
     Dosage: UNK
     Route: 061
     Dates: start: 20100330, end: 20100330

REACTIONS (4)
  - DRUG INEFFECTIVE [None]
  - HEADACHE [None]
  - INJECTION SITE PAIN [None]
  - INJECTION SITE SWELLING [None]
